FAERS Safety Report 6608463-8 (Version None)
Quarter: 2010Q1

REPORT INFORMATION
  Report Type: 
  Country: None (occurrence: None)
  Receive Date: 20100226
  Receipt Date: 20100226
  Transmission Date: 20100710
  Serious: Yes (Hospitalization)
  Sender: FDA-Public Use
  Company Number: None

PATIENT
  Sex: Male
  Weight: 83.9154 kg

DRUGS (1)
  1. APO-AZATHIOPRINE 50MG AZATHIOPRINE [Suspect]
     Indication: CROHN'S DISEASE
     Dosage: 100MG ONCE DAILY PO
     Route: 048
     Dates: start: 20091222, end: 20100108

REACTIONS (13)
  - ARTHRALGIA [None]
  - BLOOD AMYLASE INCREASED [None]
  - BLOOD BILIRUBIN INCREASED [None]
  - CHEST DISCOMFORT [None]
  - CHILLS [None]
  - CORONARY ARTERY OCCLUSION [None]
  - FEELING COLD [None]
  - INFLUENZA LIKE ILLNESS [None]
  - LETHARGY [None]
  - NAUSEA [None]
  - PNEUMONIA [None]
  - RED BLOOD CELL SEDIMENTATION RATE INCREASED [None]
  - TROPONIN INCREASED [None]
